FAERS Safety Report 8488822-1 (Version None)
Quarter: 2012Q3

REPORT INFORMATION
  Report Type: 
  Country: None (occurrence: None)
  Receive Date: 20120705
  Receipt Date: 20120625
  Transmission Date: 20120928
  Serious: Yes (Death)
  Sender: FDA-Public Use
  Company Number: JP-SANOFI-AVENTIS-2012SA032196

PATIENT
  Age: 71 Year
  Sex: Male
  Weight: 52.4 kg

DRUGS (8)
  1. ALLOPURINOL [Concomitant]
     Route: 048
  2. NEORAL [Concomitant]
     Route: 048
  3. ASPIRIN [Concomitant]
     Route: 048
  4. MEDROL [Concomitant]
     Route: 048
  5. WARFARIN SODIUM [Concomitant]
     Route: 048
  6. PLAVIX [Concomitant]
     Route: 048
  7. TAXOTERE [Suspect]
     Dosage: DOSE-95.4 MG, QD EVERY 4 WEEKS
     Route: 042
     Dates: start: 20120312, end: 20120402
  8. MICARDIS [Concomitant]
     Route: 048

REACTIONS (2)
  - RESPIRATORY DISORDER [None]
  - INTERSTITIAL LUNG DISEASE [None]
